FAERS Safety Report 11592306 (Version 1)
Quarter: 2015Q4

REPORT INFORMATION
  Report Type: Other
  Country: CN (occurrence: CN)
  Receive Date: 20151005
  Receipt Date: 20151005
  Transmission Date: 20160304
  Serious: Yes (Hospitalization)
  Sender: FDA-Public Use
  Company Number: CN-NSR_02018_2015

PATIENT
  Age: 49 Year
  Sex: Male

DRUGS (4)
  1. CHINESE MEDICINES [Concomitant]
     Indication: CHRONIC KIDNEY DISEASE
     Dosage: DF
  2. ALLOPURINOL. [Suspect]
     Active Substance: ALLOPURINOL
     Indication: CHRONIC KIDNEY DISEASE
     Dosage: DF
  3. AMLODIPINE [Concomitant]
     Active Substance: AMLODIPINE BESYLATE
     Indication: CHRONIC KIDNEY DISEASE
     Dosage: DF
  4. VALSARTAN. [Concomitant]
     Active Substance: VALSARTAN
     Indication: CHRONIC KIDNEY DISEASE
     Dosage: DF

REACTIONS (2)
  - Drug eruption [Recovered/Resolved]
  - Leukocytosis [Recovered/Resolved]
